FAERS Safety Report 4764756-0 (Version None)
Quarter: 2005Q3

REPORT INFORMATION
  Report Type: 
  Country: None (occurrence: None)
  Receive Date: 20050907
  Receipt Date: 20050825
  Transmission Date: 20060218
  Serious: Yes (Hospitalization)
  Sender: FDA-Public Use
  Company Number: 2005113503

PATIENT
  Age: 40 Year
  Sex: Female

DRUGS (4)
  1. CLINDAMYCIN HCL [Suspect]
     Indication: RASH
     Dosage: INTRAVENOUS
     Route: 042
     Dates: start: 20010829
  2. ZOVIRAX [Suspect]
     Indication: RASH
     Dosage: INTRAVENOUS
     Route: 042
     Dates: start: 20010829
  3. CORTISONE ACETATE [Suspect]
     Indication: ILL-DEFINED DISORDER
     Dates: start: 20010827
  4. ANTIBIOTICS (ANTIBIOTICS) [Concomitant]

REACTIONS (9)
  - ERYTHEMA MULTIFORME [None]
  - EXPOSURE TO CHEMICAL POLLUTION [None]
  - FUNGAL INFECTION [None]
  - HERPES SIMPLEX [None]
  - MUSCULOSKELETAL STIFFNESS [None]
  - OEDEMA PERIPHERAL [None]
  - SKIN DISCOLOURATION [None]
  - SKIN TEST POSITIVE [None]
  - VARICELLA [None]
